FAERS Safety Report 9911642 (Version 1)
Quarter: 2014Q1

REPORT INFORMATION
  Report Type: Spontaneous
  Country: NO (occurrence: NO)
  Receive Date: 20140219
  Receipt Date: 20140219
  Transmission Date: 20141002
  Serious: Yes (Other)
  Sender: FDA-Public Use
  Company Number: ALCN2014NO001140

PATIENT
  Age: 50 Year
  Sex: Male

DRUGS (1)
  1. CIPROFLOXACIN [Suspect]
     Dosage: UNK

REACTIONS (5)
  - Dermatitis exfoliative [Unknown]
  - Pruritus generalised [Unknown]
  - Rash generalised [Unknown]
  - Oedema peripheral [Unknown]
  - Skin exfoliation [Unknown]
